FAERS Safety Report 4987289-5 (Version None)
Quarter: 2006Q2

REPORT INFORMATION
  Report Type: 
  Country: None (occurrence: None)
  Receive Date: 20060501
  Receipt Date: 20051205
  Transmission Date: 20061013
  Serious: Yes (Death)
  Sender: FDA-Public Use
  Company Number: US-MERCK-0512USA00835

PATIENT
  Age: 74 Year
  Sex: Female
  Weight: 66 kg

DRUGS (9)
  1. CELEBREX [Concomitant]
     Indication: RHEUMATOID ARTHRITIS
     Route: 048
     Dates: start: 20030715, end: 20030815
  2. FOLIC ACID [Concomitant]
     Route: 065
     Dates: start: 20010209, end: 20010801
  3. ENBREL [Concomitant]
     Indication: RHEUMATOID ARTHRITIS
     Route: 065
     Dates: start: 19990701, end: 20031001
  4. METHOTREXATE [Concomitant]
     Route: 065
     Dates: start: 19990315, end: 20010201
  5. TIMOLOL GFS [Concomitant]
     Indication: GLAUCOMA
     Route: 065
     Dates: start: 19990110, end: 20031101
  6. HYDROCODONE BITARTRATE + ACETAMINOPHEN [Suspect]
     Indication: PAIN
     Route: 065
     Dates: start: 19990801
  7. VIOXX [Suspect]
     Indication: RHEUMATOID ARTHRITIS
     Route: 048
     Dates: start: 19990723, end: 20010622
  8. VIOXX [Suspect]
     Route: 048
     Dates: start: 20030731, end: 20031031
  9. BEXTRA [Concomitant]
     Route: 065
     Dates: start: 20030731, end: 20031031

REACTIONS (1)
  - MYOCARDIAL INFARCTION [None]
